FAERS Safety Report 10812905 (Version 1)
Quarter: 2015Q1

REPORT INFORMATION
  Report Type: Report from Study
  Country: US (occurrence: US)
  Receive Date: 20150218
  Receipt Date: 20150218
  Transmission Date: 20150721
  Serious: No
  Sender: FDA-Public Use
  Company Number: US-ABBVIE-14K-163-1272353-00

PATIENT
  Sex: Female

DRUGS (4)
  1. HUMIRA [Suspect]
     Active Substance: ADALIMUMAB
     Route: 065
     Dates: start: 20141014
  2. HUMIRA [Suspect]
     Active Substance: ADALIMUMAB
     Route: 065
     Dates: start: 2014, end: 20141014
  3. HUMIRA [Suspect]
     Active Substance: ADALIMUMAB
     Indication: CROHN^S DISEASE
     Route: 065
     Dates: start: 20130731, end: 2014
  4. TRAMADOL [Suspect]
     Active Substance: TRAMADOL
     Indication: PAIN
     Route: 065
     Dates: start: 2014

REACTIONS (4)
  - Dizziness [Unknown]
  - Drug ineffective [Not Recovered/Not Resolved]
  - Arthralgia [Not Recovered/Not Resolved]
  - Drug specific antibody present [Unknown]

NARRATIVE: CASE EVENT DATE: 2014
